FAERS Safety Report 14566015 (Version 1)
Quarter: 2018Q1

REPORT INFORMATION
  Report Type: Spontaneous
  Country: US (occurrence: US)
  Receive Date: 20180222
  Receipt Date: 20180222
  Transmission Date: 20180509
  Serious: Yes (Hospitalization)
  Sender: FDA-Public Use
  Company Number: None

PATIENT
  Age: 65 Year
  Sex: Male
  Weight: 105.23 kg

DRUGS (17)
  1. METHOTREXATE. [Suspect]
     Active Substance: METHOTREXATE
     Dates: end: 20180122
  2. SACUBITRIL-VALSARTAN [Concomitant]
     Active Substance: SACUBITRIL\VALSARTAN
  3. CYTARABINE. [Suspect]
     Active Substance: CYTARABINE
     Dates: end: 20180208
  4. VINCRISTINE SULFATE. [Suspect]
     Active Substance: VINCRISTINE SULFATE
     Dates: end: 20180112
  5. ACYCLOVIR. [Concomitant]
     Active Substance: ACYCLOVIR
  6. DOCUSATE [Concomitant]
     Active Substance: DOCUSATE
  7. METOPROLOL. [Concomitant]
     Active Substance: METOPROLOL
  8. PROCHLORPERAZINE. [Concomitant]
     Active Substance: PROCHLORPERAZINE
  9. MERCAPTOPURINE. [Suspect]
     Active Substance: MERCAPTOPURINE
     Dates: end: 20180211
  10. DAUNORUBICIN [Suspect]
     Active Substance: DAUNORUBICIN
     Dates: end: 20180112
  11. PANTOPROZOLE [Concomitant]
  12. SENNA [Concomitant]
     Active Substance: SENNA LEAF\SENNOSIDES\SENNOSIDES A AND B
  13. SOTALOL. [Concomitant]
     Active Substance: SOTALOL
  14. CHCLOPHOSPHAMIDE [Suspect]
     Active Substance: CYCLOPHOSPHAMIDE
     Dates: end: 20180122
  15. FLUCONAZOLE. [Concomitant]
     Active Substance: FLUCONAZOLE
  16. SULFAMETHOXAZOLE-TRIMETHOPRIM [Concomitant]
     Active Substance: SULFAMETHOXAZOLE\TRIMETHOPRIM
  17. POLYETHYLENE GLYCOL PACK [Concomitant]

REACTIONS (2)
  - Micrococcus test positive [None]
  - Blood culture positive [None]

NARRATIVE: CASE EVENT DATE: 20180210
